FAERS Safety Report 19878197 (Version 1)
Quarter: 2021Q3

REPORT INFORMATION
  Report Type: Spontaneous
  Country: US (occurrence: US)
  Receive Date: 20210923
  Receipt Date: 20210923
  Transmission Date: 20211014
  Serious: No
  Sender: FDA-Public Use
  Company Number: None

PATIENT
  Age: 72 Year
  Sex: Male

DRUGS (1)
  1. TACROLIMUS (TACROLIMUS 0.5MG CAP) [Suspect]
     Active Substance: TACROLIMUS
     Indication: TRANSPLANT
     Dates: start: 20180627

REACTIONS (3)
  - Chronic kidney disease [None]
  - Blood creatinine increased [None]
  - Blood urea increased [None]

NARRATIVE: CASE EVENT DATE: 20210901
